FAERS Safety Report 25221852 (Version 1)
Quarter: 2025Q2

REPORT INFORMATION
  Report Type: Spontaneous
  Country: US (occurrence: None)
  Receive Date: 20250421
  Receipt Date: 20250421
  Transmission Date: 20250716
  Serious: Yes (Other)
  Sender: FDA-CTU
  Company Number: None

PATIENT
  Age: 59 Year
  Sex: Female
  Weight: 89.1 kg

DRUGS (1)
  1. RYZUMVI [Suspect]
     Active Substance: PHENTOLAMINE MESYLATE

REACTIONS (3)
  - Urticaria [None]
  - Pain [None]
  - Erythema [None]

NARRATIVE: CASE EVENT DATE: 20250415
